FAERS Safety Report 4652105-8 (Version None)
Quarter: 2005Q2

REPORT INFORMATION
  Report Type: 
  Country: None (occurrence: None)
  Receive Date: 20050502
  Receipt Date: 20050425
  Transmission Date: 20051028
  Serious: Yes (Other)
  Sender: FDA-Public Use
  Company Number: 2005065167

PATIENT
  Age: 48 Year
  Sex: Female
  Weight: 71.6683 kg

DRUGS (27)
  1. LIPITOR [Suspect]
     Indication: BLOOD CHOLESTEROL INCREASED
     Dosage: ORAL
     Route: 048
     Dates: start: 20040501, end: 20041118
  2. PROPRANOLOL [Concomitant]
  3. CARBAMAZEPINE [Concomitant]
  4. GABAPENTIN [Concomitant]
  5. CLOPIDOGREL BISULFATE [Concomitant]
  6. PREDNISONE [Concomitant]
  7. FUROSEMIDE [Concomitant]
  8. FOLIC ACID [Concomitant]
  9. CALCITRIOL [Concomitant]
  10. IMIPRAMINE [Concomitant]
  11. MYCOPHENOLATE MOFETIL (MYCOPHENOLATE MOFETIL) [Concomitant]
  12. LEVOTHYROXINE SODIUM [Concomitant]
  13. PHENOBARBITAL TAB [Concomitant]
  14. NIFEDIPINE [Concomitant]
  15. ESOMEPRAZOLE (ESOMEPRAZOLE) [Concomitant]
  16. ZOLPIDEM TARTRATE [Concomitant]
  17. WARFARIN SODIUM [Concomitant]
  18. CLAVULIN (AMOXICILLIN TRIHYDRATE, CLAVULANATE POTASSIUM) [Concomitant]
  19. ONDANSETRON HCL [Concomitant]
  20. ASPIRIN [Concomitant]
  21. CALCIUM CARBONATE (CALCIUM CARBONATE) [Concomitant]
  22. POTASSIUM CHLORIDE [Concomitant]
  23. CYANOCOBALAMIN [Concomitant]
  24. ERYTHROMYCIN [Concomitant]
  25. METHOTREXATE [Concomitant]
  26. IRON (IRON) [Concomitant]
  27. EGOCALCIFEROL (ERGOCALCIFEROL) [Concomitant]

REACTIONS (8)
  - ANKLE FRACTURE [None]
  - CONTUSION [None]
  - FACE INJURY [None]
  - FALL [None]
  - LIGAMENT INJURY [None]
  - NEURALGIA [None]
  - SENSORY DISTURBANCE [None]
  - WRIST FRACTURE [None]
